FAERS Safety Report 20450996 (Version 1)
Quarter: 2022Q1

REPORT INFORMATION
  Report Type: Spontaneous
  Country: US (occurrence: None)
  Receive Date: 20220209
  Receipt Date: 20220209
  Transmission Date: 20220423
  Serious: Yes (Death)
  Sender: FDA-Public Use
  Company Number: None

PATIENT
  Age: 71 Year
  Sex: Male
  Weight: 86.3 kg

DRUGS (2)
  1. ABATACEPT [Suspect]
     Active Substance: ABATACEPT
     Indication: Acute graft versus host disease
     Dosage: OTHER FREQUENCY : DAYS -1,+5;?
     Route: 042
     Dates: start: 20220119, end: 20220124
  2. ABATACEPT [Suspect]
     Active Substance: ABATACEPT
     Indication: Prophylaxis

REACTIONS (13)
  - Mucosal inflammation [None]
  - Febrile neutropenia [None]
  - Pleural effusion [None]
  - Acute kidney injury [None]
  - Acute respiratory failure [None]
  - Thrombocytopenia [None]
  - Hypoxia [None]
  - Bradycardia [None]
  - Cardiac arrest [None]
  - Pulmonary alveolar haemorrhage [None]
  - Pneumonitis [None]
  - COVID-19 pneumonia [None]
  - Pulseless electrical activity [None]

NARRATIVE: CASE EVENT DATE: 20220202
